FAERS Safety Report 6667056-7 (Version None)
Quarter: 2010Q2

REPORT INFORMATION
  Report Type: 
  Country: None (occurrence: None)
  Receive Date: 20100402
  Receipt Date: 20100402
  Transmission Date: 20101027
  Serious: Yes (Life-Threatening)
  Sender: FDA-Public Use
  Company Number: None

PATIENT
  Age: 38 Year
  Sex: Female
  Weight: 74.8435 kg

DRUGS (1)
  1. AMBIEN [Suspect]
     Dosage: 10MG 1 TAB

REACTIONS (2)
  - AMNESIA [None]
  - SCREAMING [None]
